FAERS Safety Report 5490261-2 (Version None)
Quarter: 2007Q4

REPORT INFORMATION
  Report Type: 
  Country: None (occurrence: None)
  Receive Date: 20071015
  Receipt Date: 20070620
  Transmission Date: 20080405
  Serious: No
  Sender: FDA-Public Use
  Company Number: 2007SP002304

PATIENT
  Age: 46 Year
  Sex: Female
  Weight: 68.0396 kg

DRUGS (4)
  1. LUNESTA [Suspect]
     Indication: INSOMNIA
     Dosage: 2 MG;1X;ORAL
     Route: 048
     Dates: start: 20070601, end: 20070601
  2. VYTORIN [Concomitant]
  3. ALLEGRA [Concomitant]
  4. YASMIN [Concomitant]

REACTIONS (3)
  - DIZZINESS [None]
  - EUPHORIC MOOD [None]
  - INSOMNIA [None]
